FAERS Safety Report 21097393 (Version 1)
Quarter: 2022Q3

REPORT INFORMATION
  Report Type: Spontaneous
  Country: ES (occurrence: ES)
  Receive Date: 20220719
  Receipt Date: 20220719
  Transmission Date: 20221027
  Serious: Yes (Hospitalization)
  Sender: FDA-Public Use
  Company Number: ES-EMA-DD-20220627-7182781-082458

PATIENT

DRUGS (10)
  1. METFORMIN HYDROCHLORIDE [Interacting]
     Active Substance: METFORMIN HYDROCHLORIDE
     Indication: Cerebrovascular accident
     Dosage: UNK UNK, BID (1/0/1)
     Route: 065
     Dates: start: 2018
  2. REPAGLINIDE [Interacting]
     Active Substance: REPAGLINIDE
     Indication: Diabetes mellitus
     Dosage: UNK UNK, TID (2/2/1)
     Route: 065
  3. PANTOPRAZOLE [Interacting]
     Active Substance: PANTOPRAZOLE
     Indication: Prophylaxis against gastrointestinal ulcer
     Dosage: UNK UNK, BID (1/0/1)
     Route: 065
     Dates: start: 202005
  4. CLOPIDOGREL [Interacting]
     Active Substance: CLOPIDOGREL BISULFATE
     Indication: Diabetes mellitus
     Dosage: UNK UNK, QD (0/1/0)
     Route: 065
  5. PREDNISONE [Interacting]
     Active Substance: PREDNISONE
     Indication: Gastrointestinal inflammation
     Dosage: UNK, BID (0.5/0/0.5)
     Route: 065
     Dates: start: 202005
  6. VILDAGLIPTIN [Concomitant]
     Active Substance: VILDAGLIPTIN
     Indication: Diabetes mellitus
     Dosage: UNK UNK, BID (0/1/1)
     Route: 065
  7. ACETAMINOPHEN [Concomitant]
     Active Substance: ACETAMINOPHEN
     Indication: Pain
     Dosage: UNK (ON DEMAND)
     Route: 065
  8. DONEPEZIL [Concomitant]
     Active Substance: DONEPEZIL
     Indication: Dementia
     Dosage: UNK UNK, QD (1/0/0)
     Route: 065
     Dates: start: 2019
  9. CALCIO + VITAMINA D3 [Concomitant]
     Indication: Prophylaxis
     Dosage: UNK, QD (1/0/0)
     Route: 065
     Dates: start: 202003
  10. FOLIC ACID [Concomitant]
     Active Substance: FOLIC ACID
     Indication: Folate deficiency
     Dosage: UNK UNK, QD (0/1/0)
     Route: 065

REACTIONS (4)
  - Drug interaction [Unknown]
  - Anal incontinence [Recovering/Resolving]
  - Abdominal pain [Recovering/Resolving]
  - Diarrhoea [Recovering/Resolving]
